FAERS Safety Report 8972060 (Version 7)
Quarter: 2013Q4

REPORT INFORMATION
  Report Type: Report from Study
  Country: US (occurrence: US)
  Receive Date: 20121219
  Receipt Date: 20131216
  Transmission Date: 20140711
  Serious: Yes (Death, Life-Threatening, Hospitalization)
  Sender: FDA-Public Use
  Company Number: US-EISAI INC-E7389-03345-CLI-US

PATIENT
  Age: 60 Year
  Sex: Female
  Weight: 52 kg

DRUGS (17)
  1. E7389 (BOLD) [Suspect]
     Indication: BREAST CANCER
     Route: 041
     Dates: start: 20120306, end: 20121204
  2. HERCEPTIN [Suspect]
     Indication: BREAST CANCER
     Route: 041
     Dates: start: 20120306, end: 20121206
  3. FLOVENT [Concomitant]
     Route: 055
  4. ATENOLOL [Concomitant]
     Route: 048
  5. NORVASC [Concomitant]
     Route: 048
  6. JANUVIA [Concomitant]
     Route: 048
  7. FUROSEMIDE [Concomitant]
     Route: 048
  8. GLUCOTROL [Concomitant]
     Route: 048
  9. FORTAMET [Concomitant]
     Route: 048
  10. LIPITOR [Concomitant]
     Route: 048
  11. NYSTATIN [Concomitant]
     Route: 048
  12. PROVENTIL [Concomitant]
     Route: 055
  13. CYANOCOBALAMIN [Concomitant]
     Route: 048
  14. FLOVENT [Concomitant]
     Dosage: UNKNOWN
     Route: 055
  15. ASPIRIN [Concomitant]
     Route: 048
  16. ASPIRIN [Concomitant]
     Route: 048
  17. COZAAR [Concomitant]
     Route: 048

REACTIONS (1)
  - Cardiac failure chronic [Fatal]
